FAERS Safety Report 13134204 (Version 1)
Quarter: 2017Q1

REPORT INFORMATION
  Report Type: Spontaneous
  Country: US (occurrence: US)
  Receive Date: 20170120
  Receipt Date: 20170120
  Transmission Date: 20170428
  Serious: No
  Sender: FDA-Public Use
  Company Number: US-PFIZER INC-2017023944

PATIENT
  Age: 81 Year
  Sex: Male

DRUGS (1)
  1. EMBEDA [Suspect]
     Active Substance: MORPHINE SULFATE\NALTREXONE HYDROCHLORIDE
     Dosage: UNK [MORPHINE SULFATE 30MG]/[NALTREXONE HYDROCHLORIDE 1.2MG]

REACTIONS (1)
  - Feeling abnormal [Unknown]
